FAERS Safety Report 14565309 (Version 2)
Quarter: 2018Q3

REPORT INFORMATION
  Report Type: Spontaneous
  Country: IT (occurrence: IT)
  Receive Date: 20180223
  Receipt Date: 20180803
  Transmission Date: 20181010
  Serious: Yes (Other)
  Sender: FDA-Public Use
  Company Number: IT-AUROBINDO-AUR-APL-2017-31919

PATIENT
  Age: 46 Year
  Sex: Female

DRUGS (2)
  1. ALPRAZOLAM. [Suspect]
     Active Substance: ALPRAZOLAM
     Indication: INTENTIONAL SELF-INJURY
     Dosage: 8.5 MILLIGRAM, IN TOTAL
     Route: 048
     Dates: start: 20161222, end: 20161222
  2. LORAZEPAM. [Suspect]
     Active Substance: LORAZEPAM
     Indication: INTENTIONAL SELF-INJURY
     Dosage: 20 MILLIGRAM, IN TOTAL
     Route: 048
     Dates: start: 20161222, end: 20161222

REACTIONS (3)
  - Tremor [Unknown]
  - Drug abuse [Unknown]
  - Intentional self-injury [Unknown]

NARRATIVE: CASE EVENT DATE: 20161222
